FAERS Safety Report 20003049 (Version 1)
Quarter: 2021Q4

REPORT INFORMATION
  Report Type: Spontaneous
  Country: NO (occurrence: NO)
  Receive Date: 20211027
  Receipt Date: 20211027
  Transmission Date: 20220303
  Serious: Yes (Other)
  Sender: FDA-Public Use
  Company Number: 2021A783233

PATIENT
  Age: 727 Month
  Sex: Female
  Weight: 90 kg

DRUGS (6)
  1. LYNPARZA [Suspect]
     Active Substance: OLAPARIB
     Indication: Ovarian cancer stage IV
     Route: 048
     Dates: start: 201906
  2. LYNPARZA [Suspect]
     Active Substance: OLAPARIB
     Indication: Ovarian cancer stage IV
     Route: 048
     Dates: start: 20190606, end: 20210415
  3. CARBOPLATIN [Concomitant]
     Active Substance: CARBOPLATIN
     Dosage: 6 COURSE OF TREATMENT
  4. CARBOPLATIN [Concomitant]
     Active Substance: CARBOPLATIN
     Dosage: 6 COURSE OF TREATMENT WITH CARBOPLATIN/PACLITAXEL
     Dates: start: 201906
  5. PACLITAXEL [Concomitant]
     Active Substance: PACLITAXEL
     Dosage: 6 COURSE OF TREATMENT
  6. PACLITAXEL [Concomitant]
     Active Substance: PACLITAXEL
     Dosage: 6 COURSE OF TREATMENT WITH CARBOPLATIN/PACLITAXEL
     Dates: start: 201906

REACTIONS (2)
  - Myelodysplastic syndrome [Not Recovered/Not Resolved]
  - Fatigue [Unknown]

NARRATIVE: CASE EVENT DATE: 20190601
